FAERS Safety Report 7482728-2 (Version None)
Quarter: 2011Q2

REPORT INFORMATION
  Report Type: 
  Country: None (occurrence: None)
  Receive Date: 20110516
  Receipt Date: 20110505
  Transmission Date: 20111010
  Serious: Yes (Hospitalization)
  Sender: FDA-Public Use
  Company Number: US-ASTRAZENECA-2011SE26335

PATIENT
  Age: 52 Year
  Sex: Male
  Weight: 77.1 kg

DRUGS (7)
  1. GABAPENTIN [Concomitant]
     Indication: PAIN
     Dosage: BID, TOTAL DAILY DOSE- 300 MG
  2. BENELASAXINE [Concomitant]
     Indication: ATTENTION DEFICIT/HYPERACTIVITY DISORDER
  3. SEROQUEL [Suspect]
     Indication: ATTENTION DEFICIT/HYPERACTIVITY DISORDER
     Route: 048
  4. SEROQUEL [Suspect]
     Indication: ANXIETY
     Route: 048
  5. KLONOPIN [Concomitant]
     Indication: ANXIETY
  6. STRATTERA [Concomitant]
     Indication: ATTENTION DEFICIT/HYPERACTIVITY DISORDER
  7. SEROQUEL [Suspect]
     Indication: BIPOLAR DISORDER
     Route: 048

REACTIONS (2)
  - SPINAL OPERATION [None]
  - INTERVERTEBRAL DISC DISORDER [None]
